FAERS Safety Report 4636354-0 (Version None)
Quarter: 2005Q2

REPORT INFORMATION
  Report Type: 
  Country: None (occurrence: None)
  Receive Date: 20050415
  Receipt Date: 20050107
  Transmission Date: 20051028
  Serious: Yes (Hospitalization, Disabling)
  Sender: FDA-Public Use
  Company Number: US-BRISTOL-MYERS SQUIBB COMPANY-12819397

PATIENT
  Age: 67 Year
  Sex: Male

DRUGS (7)
  1. TAXOL [Suspect]
     Indication: LUNG NEOPLASM MALIGNANT
     Route: 042
     Dates: start: 20041210, end: 20041210
  2. CARBOPLATIN [Suspect]
     Indication: LUNG NEOPLASM MALIGNANT
     Route: 042
     Dates: start: 20041210, end: 20041210
  3. ALOXI [Concomitant]
  4. DECADRON [Concomitant]
  5. BENADRYL [Concomitant]
  6. TAGAMET [Concomitant]
  7. RADIATION THERAPY [Concomitant]

REACTIONS (1)
  - CATHETER SITE NECROSIS [None]
